FAERS Safety Report 9044889 (Version 1)
Quarter: 2013Q1

REPORT INFORMATION
  Report Type: Report from Study
  Country: JP (occurrence: JP)
  Receive Date: 20130130
  Receipt Date: 20130130
  Transmission Date: 20140127
  Serious: Yes (Other)
  Sender: FDA-Public Use
  Company Number: JP-GLAXOSMITHKLINE-B0858785A

PATIENT
  Age: 75 None
  Sex: Female

DRUGS (9)
  1. SERETIDE [Suspect]
     Indication: ASTHMA
     Dosage: 500MCG TWICE PER DAY
     Route: 055
     Dates: start: 20080709
  2. PARIET [Concomitant]
     Indication: GASTROOESOPHAGEAL REFLUX DISEASE
     Route: 048
  3. ALOSITOL [Concomitant]
     Route: 048
  4. AMLODIN [Concomitant]
     Route: 048
  5. ACTONEL [Concomitant]
     Route: 048
  6. THEODUR [Concomitant]
     Indication: ASTHMA
     Route: 048
  7. MUCOSTA [Concomitant]
     Indication: GASTRITIS
     Route: 048
  8. SINGULAIR [Concomitant]
     Indication: ASTHMA
     Route: 048
  9. BENET [Concomitant]
     Route: 048
     Dates: end: 20080824

REACTIONS (5)
  - Sputum purulent [Unknown]
  - Bronchitis [Recovered/Resolved]
  - Pyrexia [Unknown]
  - White blood cell count increased [Unknown]
  - C-reactive protein increased [Unknown]
